FAERS Safety Report 5531672-6 (Version None)
Quarter: 2007Q4

REPORT INFORMATION
  Report Type: 
  Country: None (occurrence: None)
  Receive Date: 20071128
  Receipt Date: 20071128
  Transmission Date: 20080405
  Serious: Yes (Death)
  Sender: FDA-Public Use
  Company Number: None

PATIENT
  Age: 88 Year
  Sex: Male
  Weight: 82.5547 kg

DRUGS (3)
  1. COUMADIN [Suspect]
     Dosage: 5MG QDAY PO
     Route: 048
     Dates: start: 20070910
  2. ASPIRIN [Suspect]
     Dosage: 81MG QDAY PO
     Route: 048
     Dates: start: 20070906
  3. LOVENOX [Suspect]
     Dosage: 30 MG SUBQ Q 24 HRS
     Route: 058
     Dates: start: 20070908

REACTIONS (4)
  - GASTROINTESTINAL HAEMORRHAGE [None]
  - PNEUMONIA [None]
  - SEPTIC SHOCK [None]
  - SHOCK [None]
